FAERS Safety Report 6695256-9 (Version None)
Quarter: 2010Q2

REPORT INFORMATION
  Report Type: 
  Country: None (occurrence: None)
  Receive Date: 20100423
  Receipt Date: 20100412
  Transmission Date: 20101027
  Serious: Yes (Hospitalization)
  Sender: FDA-Public Use
  Company Number: US-ELI_LILLY_AND_COMPANY-US201004003898

PATIENT
  Age: 53 Year
  Sex: Male

DRUGS (14)
  1. EFFIENT [Suspect]
  2. ASPIRIN [Concomitant]
  3. NITROGLYCERIN [Concomitant]
  4. ZOCOR [Concomitant]
  5. INSULIN [Concomitant]
     Indication: DIABETES MELLITUS
  6. SEVELAMER [Concomitant]
  7. PANCREASE /00014701/ [Concomitant]
  8. SYNTHROID [Concomitant]
  9. HAEMODIALYTICS AND HAEMOFILTRATES [Concomitant]
  10. NEXIUM [Concomitant]
  11. CLARITIN [Concomitant]
  12. CALCIUM [Concomitant]
  13. CALCITRIOL [Concomitant]
  14. AUGMENTIN '125' [Concomitant]

REACTIONS (1)
  - CARDIAC FAILURE CONGESTIVE [None]
